FAERS Safety Report 4783433-3 (Version None)
Quarter: 2005Q3

REPORT INFORMATION
  Report Type: 
  Country: None (occurrence: None)
  Receive Date: 20050928
  Receipt Date: 20050912
  Transmission Date: 20060218
  Serious: Yes (Other)
  Sender: FDA-Public Use
  Company Number: USA040155683

PATIENT
  Age: 50 Year
  Sex: Female
  Weight: 55 kg

DRUGS (2)
  1. FORTEO [Suspect]
     Dates: start: 20041101
  2. HUMALOG [Suspect]
     Dates: start: 20010101

REACTIONS (7)
  - BLOOD GLUCOSE DECREASED [None]
  - BLOOD GLUCOSE INCREASED [None]
  - DRUG INEFFECTIVE [None]
  - GLYCOSYLATED HAEMOGLOBIN INCREASED [None]
  - LEAD URINE INCREASED [None]
  - PANIC ATTACK [None]
  - PHARMACEUTICAL PRODUCT COMPLAINT [None]
